FAERS Safety Report 4775642-4 (Version None)
Quarter: 2005Q3

REPORT INFORMATION
  Report Type: 
  Country: None (occurrence: None)
  Receive Date: 20050920
  Receipt Date: 20050906
  Transmission Date: 20060218
  Serious: Yes (Hospitalization)
  Sender: FDA-Public Use
  Company Number: 2005CL000603

PATIENT
  Age: 71 Year
  Sex: Female
  Weight: 80 kg

DRUGS (13)
  1. BYETTA [Suspect]
     Indication: DIABETES MELLITUS NON-INSULIN-DEPENDENT
     Dosage: 10 MCG; BID; SC
     Route: 058
     Dates: start: 20050317, end: 20050509
  2. METFORMIN [Concomitant]
  3. AVANDIA [Concomitant]
  4. AMBIEN [Concomitant]
  5. PAROXETINE [Concomitant]
  6. ALLOPURINOL [Concomitant]
  7. LIPITOR [Concomitant]
  8. ACTONEL [Concomitant]
  9. HYDROCHLOROTHIAZIDE [Concomitant]
  10. FUROSEMIDE [Concomitant]
  11. ALDOSPIRONE [Concomitant]
  12. PEPCID [Concomitant]
  13. ASPIRIN [Concomitant]

REACTIONS (4)
  - ALVEOLITIS ALLERGIC [None]
  - INTERSTITIAL LUNG DISEASE [None]
  - PNEUMONITIS [None]
  - VIRAL INFECTION [None]
